FAERS Safety Report 9741413 (Version 1)
Quarter: 2013Q4

REPORT INFORMATION
  Report Type: Report from Study
  Country: US (occurrence: US)
  Receive Date: 20131209
  Receipt Date: 20131209
  Transmission Date: 20140711
  Serious: Yes (Other)
  Sender: FDA-Public Use
  Company Number: PHEH2013US025116

PATIENT
  Age: 43 Year
  Sex: Female
  Weight: 65.76 kg

DRUGS (1)
  1. GILENYA [Suspect]
     Indication: MULTIPLE SCLEROSIS
     Dosage: 0.5 MG, QD
     Route: 048
     Dates: start: 20131108

REACTIONS (4)
  - Thyroid neoplasm [Not Recovered/Not Resolved]
  - Memory impairment [Recovering/Resolving]
  - Infectious mononucleosis [Recovered/Resolved]
  - Oropharyngeal pain [Not Recovered/Not Resolved]
